FAERS Safety Report 15157604 (Version 2)
Quarter: 2018Q3

REPORT INFORMATION
  Report Type: Report from Study
  Country: US (occurrence: US)
  Receive Date: 20180718
  Receipt Date: 20180720
  Transmission Date: 20181010
  Serious: Yes (Other)
  Sender: FDA-Public Use
  Company Number: US-GILEAD-2018-0338301

PATIENT
  Age: 36 Year
  Sex: Female
  Weight: 48.98 kg

DRUGS (4)
  1. REVATIO [Concomitant]
     Active Substance: SILDENAFIL CITRATE
  2. AMBRISENTAN [Suspect]
     Active Substance: AMBRISENTAN
     Indication: PULMONARY HYPERTENSION
     Dosage: 5 MG, QD
     Route: 048
     Dates: start: 20180424
  3. AMBRISENTAN [Suspect]
     Active Substance: AMBRISENTAN
     Indication: SYSTEMIC LUPUS ERYTHEMATOSUS
     Dosage: 10 MG, QD
     Route: 048
     Dates: start: 20180424
  4. VELETRI [Concomitant]
     Active Substance: EPOPROSTENOL
     Dosage: 10 NG/KG/MIN

REACTIONS (11)
  - Infusion site pain [Recovering/Resolving]
  - Nasal congestion [Not Recovered/Not Resolved]
  - Infusion site rash [Recovered/Resolved]
  - Dyspepsia [Recovering/Resolving]
  - Central venous catheterisation [Unknown]
  - Application site pruritus [Not Recovered/Not Resolved]
  - Pain in jaw [Unknown]
  - Catheter site haemorrhage [Not Recovered/Not Resolved]
  - Catheter site pain [Unknown]
  - Infusion site bruising [Recovering/Resolving]
  - Gastrooesophageal reflux disease [Not Recovered/Not Resolved]
